FAERS Safety Report 6397157-2 (Version None)
Quarter: 2009Q4

REPORT INFORMATION
  Report Type: 
  Country: None (occurrence: None)
  Receive Date: 20091012
  Receipt Date: 20091008
  Transmission Date: 20100525
  Serious: Yes (Other)
  Sender: FDA-Public Use
  Company Number: B0597179A

PATIENT
  Sex: Female
  Weight: 51.5 kg

DRUGS (3)
  1. ZENTEL [Suspect]
     Dosage: 400MG TWICE PER DAY
     Route: 048
     Dates: start: 20090826, end: 20090911
  2. DROSPIRENONE [Concomitant]
     Indication: DRUG USE FOR UNKNOWN INDICATION
     Route: 048
  3. ETHINYL ESTRADIOL [Concomitant]
     Indication: DRUG USE FOR UNKNOWN INDICATION
     Route: 048

REACTIONS (4)
  - ALOPECIA [None]
  - ANAEMIA [None]
  - DYSPNOEA EXERTIONAL [None]
  - LEUKOPENIA [None]
